FAERS Safety Report 8102260-2 (Version None)
Quarter: 2012Q1

REPORT INFORMATION
  Report Type: 
  Country: None (occurrence: None)
  Receive Date: 20120201
  Receipt Date: 20120127
  Transmission Date: 20120608
  Serious: Yes (Other)
  Sender: FDA-Public Use
  Company Number: US-TEVA-287650USA

PATIENT
  Sex: Female

DRUGS (3)
  1. ACETYLSALICYLIC ACID SRT [Concomitant]
     Dates: start: 20000101
  2. METOPROLOL TARTRATE [Suspect]
     Route: 048
     Dates: start: 20000101
  3. SIMVASTATIN [Concomitant]
     Dates: start: 20000101

REACTIONS (3)
  - MYALGIA [None]
  - NEOPLASM MALIGNANT [None]
  - BONE PAIN [None]
